FAERS Safety Report 17093737 (Version 1)
Quarter: 2019Q4

REPORT INFORMATION
  Report Type: Spontaneous
  Country: DE (occurrence: DE)
  Receive Date: 20191129
  Receipt Date: 20191129
  Transmission Date: 20200122
  Serious: Yes (Hospitalization, Other)
  Sender: FDA-Public Use
  Company Number: NVSC2019DE051869

PATIENT
  Age: 68 Year
  Sex: Male

DRUGS (1)
  1. VOLTAREN DOLO [Suspect]
     Active Substance: DICLOFENAC
     Indication: LIMB INJURY
     Dosage: 25 MG
     Route: 065

REACTIONS (8)
  - Hyperhidrosis [Unknown]
  - Pain [Unknown]
  - Somnolence [Unknown]
  - Hypoaesthesia oral [Unknown]
  - Loss of consciousness [Unknown]
  - Chills [Unknown]
  - Erythema [Unknown]
  - Anaphylactic shock [Unknown]
